FAERS Safety Report 11455411 (Version 1)
Quarter: 2015Q3

REPORT INFORMATION
  Report Type: Spontaneous
  Country: US (occurrence: US)
  Receive Date: 20150903
  Receipt Date: 20150903
  Transmission Date: 20151125
  Serious: No
  Sender: FDA-Public Use
  Company Number: US-ELI_LILLY_AND_COMPANY-US201508003976

PATIENT
  Sex: Male

DRUGS (2)
  1. LEVOTHYROXINE. [Concomitant]
     Active Substance: LEVOTHYROXINE
  2. CYMBALTA [Suspect]
     Active Substance: DULOXETINE HYDROCHLORIDE
     Indication: DEPRESSION
     Dosage: 60 MG, UNKNOWN

REACTIONS (4)
  - Wrong technique in product usage process [Not Recovered/Not Resolved]
  - Tongue blistering [Recovered/Resolved]
  - Feeling abnormal [Not Recovered/Not Resolved]
  - Expired product administered [Not Recovered/Not Resolved]
